FAERS Safety Report 16257049 (Version 4)
Quarter: 2019Q2

REPORT INFORMATION
  Report Type: Report from Study
  Country: CN (occurrence: CN)
  Receive Date: 20190430
  Receipt Date: 20190527
  Transmission Date: 20190711
  Serious: Yes (Hospitalization)
  Sender: FDA-Public Use
  Company Number: CN-AMGEN-CHNCT2019067504

PATIENT
  Age: 59 Year
  Sex: Male
  Weight: 68.1 kg

DRUGS (15)
  1. MONTMORILLONITE [Concomitant]
     Active Substance: MONTMORILLONITE
     Dosage: 3-6 GRAM
     Route: 048
     Dates: start: 20190321, end: 20190510
  2. GLUTAMINE [Concomitant]
     Active Substance: GLUTAMINE
     Dosage: 2 UNK
     Route: 048
     Dates: start: 20190321, end: 20190510
  3. CALCITRIOL. [Concomitant]
     Active Substance: CALCITRIOL
     Dosage: 0.25 MICROGRAM
     Route: 048
     Dates: start: 20190112
  4. RECOMBINANT HUMAN ERYTHROPOIETIN [Concomitant]
     Active Substance: ERYTHROPOIETIN
     Dosage: 2000-4000 UNK
     Dates: start: 20180828
  5. CALCIUM GLUCONATE. [Concomitant]
     Active Substance: CALCIUM GLUCONATE
     Dosage: 20-30 MILLILITER
     Route: 042
     Dates: start: 20190203, end: 20190321
  6. MECOBALAMIN [Concomitant]
     Active Substance: METHYLCOBALAMIN
     Dosage: 0.5 MILLIGRAM
     Route: 042
     Dates: start: 20190122, end: 20190212
  7. LEVOCARNITINE. [Concomitant]
     Active Substance: LEVOCARNITINE
     Dosage: 5 MILLILITER
     Route: 042
     Dates: start: 20130101, end: 20190430
  8. POLYSACCHARIDE-IRON COMPLEX [Concomitant]
     Active Substance: FERRIC POLYSACCHARIDE COMPLEX
     Dosage: 0.3 GRAM
     Route: 048
     Dates: start: 2010
  9. FOLIC ACID. [Concomitant]
     Active Substance: FOLIC ACID
     Dosage: 10 MILLIGRAM
     Route: 048
     Dates: start: 2010
  10. LOW MOLECULAR WEIGHT HEPARIN, CALCIUM SALT [Concomitant]
     Dosage: 2800-3000 UNK
     Route: 042
     Dates: start: 20181229, end: 20190511
  11. BIFIDOBACTERIUM NOS [Concomitant]
     Dosage: 0.84 GRAM
     Route: 048
     Dates: start: 20190321, end: 20190510
  12. CINACALCET HCL [Suspect]
     Active Substance: CINACALCET HYDROCHLORIDE
     Indication: HYPERPARATHYROIDISM SECONDARY
     Dosage: UNK
     Route: 065
     Dates: start: 20181023, end: 20190422
  13. CALCIUM CARBONATE. [Concomitant]
     Active Substance: CALCIUM CARBONATE
     Dosage: 0.5 GRAM
     Route: 048
     Dates: start: 20190112
  14. VITAMIN D3 [Concomitant]
     Active Substance: CHOLECALCIFEROL
     Dosage: 5 MICROGRAM
     Route: 048
     Dates: start: 20190112
  15. NIFEDIPINE. [Concomitant]
     Active Substance: NIFEDIPINE
     Dosage: 10-30 MILLIGRAM
     Dates: start: 20181103, end: 20190507

REACTIONS (1)
  - Lacunar infarction [Not Recovered/Not Resolved]

NARRATIVE: CASE EVENT DATE: 20190425
